FAERS Safety Report 5818446-3 (Version None)
Quarter: 2008Q3

REPORT INFORMATION
  Report Type: 
  Country: None (occurrence: None)
  Receive Date: 20080718
  Receipt Date: 20080714
  Transmission Date: 20090109
  Serious: Yes (Other)
  Sender: FDA-Public Use
  Company Number: 2008S1000451

PATIENT
  Age: 47 Year
  Sex: Female

DRUGS (8)
  1. ROXICODONE [Suspect]
     Dosage: 30 MG; QID;
  2. XANAX [Suspect]
     Dosage: 2 MG; TID;
  3. OXYCONTIN [Suspect]
     Dosage: 50 MG; BID;
  4. SOMA [Suspect]
     Dosage: ; QD;
  5. WELLBUTRIN [Suspect]
     Dosage: ; TID;
  6. ADDERALL 10 [Suspect]
  7. ASPIRIN [Suspect]
  8. YASMIN [Suspect]
     Indication: CONTRACEPTION

REACTIONS (2)
  - PYREXIA [None]
  - SUICIDAL IDEATION [None]
